FAERS Safety Report 6087693-0 (Version None)
Quarter: 2009Q1

REPORT INFORMATION
  Report Type: 
  Country: None (occurrence: None)
  Receive Date: 20090223
  Receipt Date: 20090210
  Transmission Date: 20090719
  Serious: Yes (Hospitalization)
  Sender: FDA-Public Use
  Company Number: GB-ROCHE-610367

PATIENT
  Sex: Male

DRUGS (18)
  1. ORLISTAT [Suspect]
     Indication: OBESITY
     Route: 048
     Dates: start: 20071113
  2. MELOXICAM [Concomitant]
     Route: 048
  3. LISINOPRIL [Concomitant]
     Route: 048
  4. FELODIPINE [Concomitant]
     Dosage: IN THE MORNING MR TABLETS
     Route: 048
  5. BENZYDROFLUMETHIAZIDE [Concomitant]
     Dosage: INDICATION: FLUID, IN THE MORNING
     Route: 048
  6. FRUSEMIDE [Concomitant]
     Dosage: IN THE MORNING
     Route: 048
  7. DOXAZOSIN MESYLATE [Concomitant]
     Dosage: IN THE MORNING
     Route: 048
  8. FERROUS SULFATE TAB [Concomitant]
     Route: 048
  9. TRIFLUOPERAZINE [Concomitant]
     Indication: ANXIETY
     Dosage: DRUG: TIFLUOPERAZINE.ONE IN THE MORNING
     Route: 048
  10. METFORMIN [Concomitant]
     Route: 048
  11. MIXTARD HUMAN 70/30 [Concomitant]
     Dosage: 7 UNITS
     Route: 058
  12. ROSUVASTATIN CALCIUM [Concomitant]
     Dosage: IN THE MORNING
     Route: 048
  13. LANSOPRAZOLE [Concomitant]
     Dosage: ONE IN THE MORNING
     Route: 048
  14. WARFARIN SODIUM [Concomitant]
     Indication: UNEVALUABLE EVENT
     Dosage: DOSE : VARIABLE
     Route: 048
  15. ALLOPURINOL [Concomitant]
     Indication: GOUT
     Dosage: IN THE MORNING
     Route: 048
  16. DOTHIEPIN HYDROCHLORIDE [Concomitant]
     Dosage: AT NIGHT
     Route: 048
  17. ASPIRIN [Concomitant]
     Dosage: IN THE MORNING DISPERASBLE TABLETS
     Route: 048
  18. FENTANYL [Concomitant]
     Dosage: EVERY 72 HOURS
     Route: 061

REACTIONS (2)
  - CELLULITIS [None]
  - PULMONARY EMBOLISM [None]
